FAERS Safety Report 5842550-7 (Version None)
Quarter: 2008Q3

REPORT INFORMATION
  Report Type: 
  Country: None (occurrence: None)
  Receive Date: 20080812
  Receipt Date: 20080731
  Transmission Date: 20090109
  Serious: Yes (Other)
  Sender: FDA-Public Use
  Company Number: US-PFIZER INC-2008057605

PATIENT
  Age: 55 Year
  Sex: Female

DRUGS (2)
  1. NEURONTIN [Suspect]
     Indication: DIABETIC NEUROPATHY
     Dosage: DAILY DOSE:2400MG-FREQ:DAILY
  2. GABAPENTIN [Suspect]
     Indication: NEUROPATHY PERIPHERAL
     Route: 048

REACTIONS (4)
  - COGNITIVE DISORDER [None]
  - CONFUSIONAL STATE [None]
  - DRUG LEVEL INCREASED [None]
  - SOMNOLENCE [None]
